FAERS Safety Report 7581537-3 (Version None)
Quarter: 2011Q2

REPORT INFORMATION
  Report Type: 
  Country: None (occurrence: None)
  Receive Date: 20110629
  Receipt Date: 20110622
  Transmission Date: 20111010
  Serious: Yes (Other)
  Sender: FDA-Public Use
  Company Number: PHHO2011DE10677

PATIENT
  Sex: Female
  Weight: 68 kg

DRUGS (1)
  1. ZOLEDRONIC ACID [Suspect]
     Indication: METASTASES TO BONE
     Dosage: 4 ML, UNK
     Dates: start: 20090303, end: 20100505

REACTIONS (1)
  - OSTEONECROSIS OF JAW [None]
